FAERS Safety Report 25979070 (Version 1)
Quarter: 2025Q4

REPORT INFORMATION
  Report Type: Spontaneous
  Country: TR (occurrence: TR)
  Receive Date: 20251030
  Receipt Date: 20251030
  Transmission Date: 20260117
  Serious: Yes (Other)
  Sender: CHEPLAPHARM
  Company Number: TR-CHEPLA-2025012429

PATIENT
  Age: 30 Year
  Sex: Male

DRUGS (12)
  1. GANCICLOVIR [Suspect]
     Active Substance: GANCICLOVIR
     Indication: Cytomegalovirus colitis
     Dosage: BID?DAILY DOSE: 10 MILLIGRAM/KG
     Route: 042
  2. GANCICLOVIR [Suspect]
     Active Substance: GANCICLOVIR
     Indication: Encephalitis cytomegalovirus
     Dosage: BID?DAILY DOSE: 10 MILLIGRAM/KG
     Route: 042
  3. GANCICLOVIR [Suspect]
     Active Substance: GANCICLOVIR
     Indication: Cytomegalovirus colitis
     Dosage: 28TH DAY OF COMBINATION THERAPY WITH FOSCARNET?DAILY DOSE: 5 MILLIGRAM/KG
     Route: 042
  4. GANCICLOVIR [Suspect]
     Active Substance: GANCICLOVIR
     Indication: Encephalitis cytomegalovirus
     Dosage: 28TH DAY OF COMBINATION THERAPY WITH FOSCARNET?DAILY DOSE: 5 MILLIGRAM/KG
     Route: 042
  5. VALGANCICLOVIR [Suspect]
     Active Substance: VALGANCICLOVIR
     Indication: Encephalitis cytomegalovirus
     Dosage: DAILY DOSE: 900 MILLIGRAM
  6. VALGANCICLOVIR [Suspect]
     Active Substance: VALGANCICLOVIR
     Indication: Cytomegalovirus colitis
     Dosage: DAILY DOSE: 900 MILLIGRAM
  7. SULFAMETHOXAZOLE\TRIMETHOPRIM [Concomitant]
     Active Substance: SULFAMETHOXAZOLE\TRIMETHOPRIM
     Indication: Antifungal prophylaxis
     Dosage: 15  MG/KG/DAY?DAILY DOSE: 15 MILLIGRAM/KG
  8. FOSCARNET [Concomitant]
     Active Substance: FOSCARNET
     Indication: Encephalitis cytomegalovirus
     Dosage: TID, ON THE 16TH DAY OF GANCICLOVIR THERAPY?DAILY DOSE: 180 MILLIGRAM/KG
     Route: 042
  9. FOSCARNET [Concomitant]
     Active Substance: FOSCARNET
     Indication: Encephalitis cytomegalovirus
     Dosage: MAINTENANCE THERAPY?DAILY DOSE: 90 MILLIGRAM/KG
     Route: 042
  10. DOLUTEGRAVIR [Concomitant]
     Active Substance: DOLUTEGRAVIR
     Indication: HIV infection
     Dosage: MAINTENANCE THERAPY
  11. EMTRICITABINE [Concomitant]
     Active Substance: EMTRICITABINE
     Indication: HIV infection
     Dosage: MAINTENANCE THERAPY
  12. TENOFOVIR DISOPROXIL FUMARATE [Concomitant]
     Active Substance: TENOFOVIR DISOPROXIL FUMARATE
     Indication: HIV infection
     Dosage: MAINTENANCE THERAPY

REACTIONS (4)
  - Encephalitis cytomegalovirus [Recovering/Resolving]
  - Condition aggravated [Unknown]
  - Drug ineffective [Unknown]
  - Off label use [Not Recovered/Not Resolved]
